FAERS Safety Report 15259043 (Version 1)
Quarter: 2018Q3

REPORT INFORMATION
  Report Type: Spontaneous
  Country: US (occurrence: US)
  Receive Date: 20180718
  Receipt Date: 20180718
  Transmission Date: 20181010
  Serious: No
  Sender: FDA-Public Use
  Company Number: None

PATIENT
  Age: 60 Year
  Sex: Male
  Weight: 83.91 kg

DRUGS (1)
  1. OXYCODONE AND ACETAMINOPHEN [Suspect]
     Active Substance: ACETAMINOPHEN\OXYCODONE HYDROCHLORIDE
     Indication: OSTEOMYELITIS
     Dosage: ?          QUANTITY:40 DF DOSAGE FORM;?
     Route: 048
     Dates: start: 20121116, end: 20121116

REACTIONS (2)
  - Loss of personal independence in daily activities [None]
  - Vision blurred [None]

NARRATIVE: CASE EVENT DATE: 20121116
